FAERS Safety Report 5618720-X (Version None)
Quarter: 2008Q1

REPORT INFORMATION
  Report Type: 
  Country: None (occurrence: None)
  Receive Date: 20080207
  Receipt Date: 20080130
  Transmission Date: 20080703
  Serious: Yes (Hospitalization)
  Sender: FDA-Public Use
  Company Number: GR-ABBOTT-08P-066-0435797-00

PATIENT
  Age: 32 Year
  Sex: Female

DRUGS (4)
  1. KLARICID [Suspect]
     Indication: EAR INFECTION
     Route: 048
     Dates: start: 20061001, end: 20061001
  2. AMOXI-CLAVULANICO [Suspect]
     Indication: EAR INFECTION
     Route: 048
  3. RABEPRAZOLE SODIUM [Concomitant]
     Indication: GASTRITIS
     Route: 048
  4. LEVOCETIRIZINE DIHYDROCHLORIDE [Concomitant]
     Indication: RHINITIS ALLERGIC
     Route: 048

REACTIONS (3)
  - COUGH [None]
  - DYSPNOEA [None]
  - LARYNGEAL OEDEMA [None]
